FAERS Safety Report 6852135-1 (Version None)
Quarter: 2010Q3

REPORT INFORMATION
  Report Type: 
  Country: None (occurrence: None)
  Receive Date: 20100717
  Receipt Date: 20071107
  Transmission Date: 20110219
  Serious: No
  Sender: FDA-Public Use
  Company Number: US-PFIZER INC-2007094518

PATIENT
  Age: 54 Year
  Sex: Male
  Weight: 108 kg

DRUGS (4)
  1. CHANTIX [Suspect]
     Dates: start: 20071001
  2. LUNESTA [Concomitant]
     Indication: INSOMNIA
     Route: 048
     Dates: start: 20071003
  3. TRAZODONE HYDROCHLORIDE [Concomitant]
     Indication: INSOMNIA
     Dates: end: 20071002
  4. CELEBREX [Concomitant]

REACTIONS (1)
  - INSOMNIA [None]
